FAERS Safety Report 9161694 (Version 1)
Quarter: 2013Q1

REPORT INFORMATION
  Report Type: Spontaneous
  Country: US (occurrence: US)
  Receive Date: 20130314
  Receipt Date: 20130314
  Transmission Date: 20140127
  Serious: Yes (Life-Threatening, Hospitalization, Other)
  Sender: FDA-Public Use
  Company Number: US-009507513-0712USA00361

PATIENT
  Age: 49 Year
  Sex: Male
  Weight: 66.22 kg

DRUGS (7)
  1. ZOLINZA [Suspect]
     Indication: MYCOSIS FUNGOIDES
     Dosage: 400 MG, QD
     Route: 048
     Dates: start: 20070731, end: 20070818
  2. ZOLOFT [Concomitant]
     Dosage: 100 MG, QD
  3. SINEQUAN [Concomitant]
     Dosage: 25 MG, HS
  4. HYDROCHLOROTHIAZIDE [Concomitant]
     Dosage: 25 MG, QD
  5. INSULIN, ISOPHANE [Concomitant]
  6. NAPROXEN SODIUM [Concomitant]
     Dosage: UNK, PRN
  7. OXYCODONE [Concomitant]
     Indication: PAIN
     Dosage: UNK, PRN

REACTIONS (8)
  - Ventricular tachycardia [Recovered/Resolved]
  - Anaemia [Recovered/Resolved]
  - Electrocardiogram QT prolonged [Recovered/Resolved]
  - Hypokalaemia [Recovered/Resolved]
  - Thrombocytopenia [Recovered/Resolved]
  - Torsade de pointes [Unknown]
  - Pulse absent [Unknown]
  - Gastrointestinal haemorrhage [Unknown]
